FAERS Safety Report 5928834-2 (Version None)
Quarter: 2008Q4

REPORT INFORMATION
  Report Type: 
  Country: None (occurrence: None)
  Receive Date: 20081021
  Receipt Date: 20081014
  Transmission Date: 20090506
  Serious: Yes (Other)
  Sender: FDA-Public Use
  Company Number: JHP200800256

PATIENT
  Age: 45 Year
  Sex: Female
  Weight: 68 kg

DRUGS (6)
  1. DELESTROGEN [Suspect]
     Indication: LETHARGY
     Dosage: 1 ML, QMON, INTRAMUSCULAR
     Route: 030
     Dates: start: 20041201, end: 20070301
  2. CLIMACTERON INJ [Suspect]
     Indication: LETHARGY
     Dosage: 1 ML, QMON, INTRAMUSCULAR
     Route: 030
     Dates: start: 20041201, end: 20070301
  3. PREMARIN [Concomitant]
  4. ESTRACE [Concomitant]
  5. CRESTOR [Concomitant]
  6. AMOXICILLIN [Concomitant]

REACTIONS (8)
  - ABSCESS ORAL [None]
  - BRUXISM [None]
  - DYSGEUSIA [None]
  - FEELING OF BODY TEMPERATURE CHANGE [None]
  - LETHARGY [None]
  - SKIN DISCOLOURATION [None]
  - TONGUE DISCOLOURATION [None]
  - TOOTH EXTRACTION [None]
